FAERS Safety Report 6096132-5 (Version None)
Quarter: 2009Q1

REPORT INFORMATION
  Report Type: 
  Country: None (occurrence: None)
  Receive Date: 20090227
  Receipt Date: 20080911
  Transmission Date: 20090719
  Serious: No
  Sender: FDA-Public Use
  Company Number: A0747074A

PATIENT
  Sex: Male

DRUGS (1)
  1. LAMICTAL [Suspect]
     Indication: BIPOLAR DISORDER
     Route: 048

REACTIONS (5)
  - ANGER [None]
  - CONFUSIONAL STATE [None]
  - FATIGUE [None]
  - INCOHERENT [None]
  - INCORRECT DOSE ADMINISTERED [None]
